FAERS Safety Report 9542525 (Version 2)
Quarter: 2014Q1

REPORT INFORMATION
  Report Type: Spontaneous
  Country: US (occurrence: None)
  Receive Date: 20130524
  Receipt Date: 20130724
  Transmission Date: 20141002
  Serious: No
  Sender: FDA-Public Use
  Company Number: PHEH2013US003841

PATIENT
  Age: 56 Year
  Sex: Female

DRUGS (1)
  1. GILENYA (FINGOLIMOD) CAPSULE [Suspect]
     Indication: RELAPSING-REMITTING MULTIPLE SCLEROSIS
     Route: 048

REACTIONS (4)
  - Fibromyalgia [None]
  - Tremor [None]
  - Pain [None]
  - Vision blurred [None]
